FAERS Safety Report 5997837-4 (Version None)
Quarter: 2008Q4

REPORT INFORMATION
  Report Type: 
  Country: None (occurrence: None)
  Receive Date: 20081212
  Receipt Date: 20081124
  Transmission Date: 20090506
  Serious: No
  Sender: FDA-Public Use
  Company Number: US-ABBOTT-08P-163-0489731-00

PATIENT
  Age: 2 Year
  Sex: Male

DRUGS (2)
  1. HUMIRA [Suspect]
     Indication: FAMILIAL RISK FACTOR
     Route: 063
     Dates: start: 20060101, end: 20080101
  2. HUMIRA [Suspect]
     Indication: DRUG EXPOSURE VIA BREAST MILK

REACTIONS (1)
  - DRUG EXPOSURE VIA BREAST MILK [None]
